FAERS Safety Report 21154346 (Version 1)
Quarter: 2022Q3

REPORT INFORMATION
  Report Type: Spontaneous
  Country: US (occurrence: US)
  Receive Date: 20220801
  Receipt Date: 20220801
  Transmission Date: 20221027
  Serious: Yes (Other)
  Sender: FDA-Public Use
  Company Number: US-LUPIN PHARMACEUTICALS INC.-2022-09827

PATIENT
  Age: 9 Year
  Sex: Female

DRUGS (8)
  1. TADALAFIL [Suspect]
     Active Substance: TADALAFIL
     Indication: Pulmonary arterial hypertension
     Dosage: UNK, THERAPY DE-ESCALATED
     Route: 065
  2. TADALAFIL [Suspect]
     Active Substance: TADALAFIL
     Dosage: UNK, THERAPY RE-ESCALATED
     Route: 065
  3. TREPROSTINIL [Suspect]
     Active Substance: TREPROSTINIL
     Indication: Pulmonary arterial hypertension
     Dosage: UNK, ACTION TAKEN: THERAPY DE-ESCALATED AND THEN RE-ESCALATED
     Route: 042
  4. TREPROSTINIL [Suspect]
     Active Substance: TREPROSTINIL
     Dosage: UNK, ACTION TAKEN: THERAPY DE-ESCALATED AND THEN RE-ESCALATED
     Route: 042
  5. SELEXIPAG [Suspect]
     Active Substance: SELEXIPAG
     Indication: Pulmonary arterial hypertension
     Dosage: UNK, ACTION TAKEN: THERAPY DE-ESCALATED AND THEN RE-ESCALATED
     Route: 065
  6. SELEXIPAG [Suspect]
     Active Substance: SELEXIPAG
     Dosage: UNK, ACTION TAKEN: THERAPY DE-ESCALATED AND THEN RE-ESCALATED
     Route: 065
  7. AMBRISENTAN [Suspect]
     Active Substance: AMBRISENTAN
     Indication: Pulmonary arterial hypertension
     Dosage: UNK, THERAPY DE-ESCALATED
     Route: 065
  8. AMBRISENTAN [Suspect]
     Active Substance: AMBRISENTAN
     Dosage: UNK, THERAPY RE-ESCALATED
     Route: 065

REACTIONS (3)
  - Drug ineffective for unapproved indication [Unknown]
  - Condition aggravated [Recovering/Resolving]
  - Off label use [Unknown]
